FAERS Safety Report 6506450-1 (Version None)
Quarter: 2009Q4

REPORT INFORMATION
  Report Type: 
  Country: None (occurrence: None)
  Receive Date: 20091221
  Receipt Date: 20091207
  Transmission Date: 20100525
  Serious: Yes (Hospitalization)
  Sender: FDA-Public Use
  Company Number: US-BIOGENIDEC-2009BI037232

PATIENT
  Age: 59 Year
  Sex: Female

DRUGS (11)
  1. TYSABRI [Suspect]
     Indication: MULTIPLE SCLEROSIS
     Route: 042
     Dates: start: 20060922, end: 20071219
  2. TYSABRI [Suspect]
     Route: 042
     Dates: start: 20090916
  3. AVONEX [Concomitant]
     Indication: MULTIPLE SCLEROSIS
     Route: 030
  4. ACTOS [Concomitant]
     Indication: HYPERGLYCAEMIA
  5. HYZAAR [Concomitant]
  6. LANTUS [Concomitant]
     Indication: HYPERGLYCAEMIA
  7. LORTAB [Concomitant]
  8. LUNESTA [Concomitant]
  9. PROVIGIL [Concomitant]
  10. XANAX [Concomitant]
  11. ZANAFLEX [Concomitant]

REACTIONS (8)
  - CONFUSIONAL STATE [None]
  - FACIAL NEURALGIA [None]
  - HYPERGLYCAEMIA [None]
  - MEMORY IMPAIRMENT [None]
  - NEURALGIA [None]
  - OPTIC NEURITIS [None]
  - RENAL FAILURE ACUTE [None]
  - WEIGHT DECREASED [None]
